FAERS Safety Report 20255520 (Version 1)
Quarter: 2021Q4

REPORT INFORMATION
  Report Type: Spontaneous
  Country: US (occurrence: None)
  Receive Date: 20211229
  Receipt Date: 20211229
  Transmission Date: 20220303
  Serious: Yes (Other)
  Sender: FDA-Public Use
  Company Number: None

PATIENT
  Age: 54 Year
  Sex: Female
  Weight: 57.6 kg

DRUGS (1)
  1. PRIVIGEN [Suspect]
     Active Substance: HUMAN IMMUNOGLOBULIN G
     Indication: Immunoglobulins decreased
     Dosage: OTHER FREQUENCY : MONTHLY;?
     Route: 042
     Dates: start: 20141030

REACTIONS (1)
  - Urticaria [None]

NARRATIVE: CASE EVENT DATE: 20211229
